FAERS Safety Report 8634825 (Version 6)
Quarter: 2013Q1

REPORT INFORMATION
  Report Type: Spontaneous
  Country: DE (occurrence: None)
  Receive Date: 20120605
  Receipt Date: 20121219
  Transmission Date: 20140127
  Serious: Yes (Hospitalization)
  Sender: FDA-Public Use
  Company Number: ACO_30436_2012

PATIENT
  Age: 53 Year
  Sex: Female

DRUGS (11)
  1. AMPYRA [Suspect]
     Indication: MULTIPLE SCLEROSIS
     Dosage: 10 MG, BID, ORAL
     Route: 048
     Dates: start: 20120518, end: 20120518
  2. LISINOPRIL (LISINOPRIL) [Concomitant]
  3. TORSEMIDE [Concomitant]
  4. BISOPROLOL FUMARATE [Concomitant]
  5. MORPHINE SULFATE [Concomitant]
  6. AMITRIPTYLINE HYDROCHLORIDE [Concomitant]
  7. IBUPROFEN (IBUPROFEN) [Concomitant]
  8. OMEPRAZOLE [Concomitant]
  9. GABAPENTIN (GABAPENTIN) [Concomitant]
  10. BACLOFEN [Concomitant]
  11. FLUNAZUL DERM (FLUCONAZOLE) [Concomitant]

REACTIONS (18)
  - Coma [None]
  - Vomiting [None]
  - Renal impairment [None]
  - Toxicity to various agents [None]
  - Body temperature decreased [None]
  - Blood pressure decreased [None]
  - Protein total decreased [None]
  - White blood cell count increased [None]
  - Blood creatine phosphokinase increased [None]
  - Gamma-glutamyltransferase increased [None]
  - C-reactive protein increased [None]
  - White blood cells urine positive [None]
  - Protein urine present [None]
  - Red blood cells urine positive [None]
  - Drug interaction [None]
  - Bradycardia [None]
  - Diarrhoea [None]
  - Abdominal pain [None]
